FAERS Safety Report 15043361 (Version 1)
Quarter: 2018Q2

REPORT INFORMATION
  Report Type: Spontaneous
  Country: US (occurrence: US)
  Receive Date: 20180621
  Receipt Date: 20180621
  Transmission Date: 20180711
  Serious: Yes (Other)
  Sender: FDA-Public Use
  Company Number: US-PFIZER INC-2018249000

PATIENT
  Age: 88 Year
  Sex: Female

DRUGS (1)
  1. ADVIL LIQUI-GELS [Suspect]
     Active Substance: IBUPROFEN
     Indication: BACK PAIN

REACTIONS (4)
  - Cataract [Unknown]
  - Sciatica [Unknown]
  - Diarrhoea [Unknown]
  - Intentional product misuse [Unknown]
